FAERS Safety Report 20094366 (Version 1)
Quarter: 2021Q4

REPORT INFORMATION
  Report Type: Spontaneous
  Country: US (occurrence: US)
  Receive Date: 20211122
  Receipt Date: 20211122
  Transmission Date: 20220303
  Serious: No
  Sender: FDA-Public Use
  Company Number: US-ORGANON-O2111USA000969

PATIENT
  Age: 26 Year
  Sex: Female
  Weight: 126.98 kg

DRUGS (1)
  1. NEXPLANON [Suspect]
     Active Substance: ETONOGESTREL
     Indication: Contraception
     Dosage: 68 MILLIGRAM, LEFT ARM
     Route: 059
     Dates: start: 201902, end: 20211105

REACTIONS (4)
  - Vaginal haemorrhage [Recovering/Resolving]
  - Menstruation irregular [Recovering/Resolving]
  - Weight increased [Recovering/Resolving]
  - Device breakage [Recovered/Resolved]

NARRATIVE: CASE EVENT DATE: 20190201
